FAERS Safety Report 4284660-4 (Version None)
Quarter: 2004Q1

REPORT INFORMATION
  Report Type: 
  Country: None (occurrence: None)
  Receive Date: 20040203
  Receipt Date: 20030407
  Transmission Date: 20041129
  Serious: Yes (Hospitalization, Disabling)
  Sender: FDA-Public Use
  Company Number: WAES 0304USA00756

PATIENT
  Age: 58 Year
  Sex: Female
  Weight: 86 kg

DRUGS (9)
  1. ASPIRIN [Concomitant]
     Indication: PROPHYLAXIS
  2. TAGAMET [Concomitant]
  3. PREMARIN [Concomitant]
  4. ESTRATAB [Concomitant]
     Indication: HORMONE REPLACEMENT THERAPY
  5. LEVOTHYROXINE SODIUM [Concomitant]
     Indication: THYROID DISORDER
  6. PRINIVIL [Concomitant]
     Indication: HYPERTENSION
     Route: 048
  7. RANITIDINE [Concomitant]
     Indication: GASTRIC DISORDER
  8. VIOXX [Suspect]
     Indication: ARTHRITIS
     Route: 048
     Dates: start: 20000731, end: 20010904
  9. HYTRIN [Concomitant]
     Indication: HYPERTENSION

REACTIONS (32)
  - ANXIETY DISORDER [None]
  - ASTHENOPIA [None]
  - BACK PAIN [None]
  - BINOCULAR EYE MOVEMENT DISORDER [None]
  - BLOOD SODIUM DECREASED [None]
  - CEREBRAL HAEMORRHAGE [None]
  - CEREBROVASCULAR ACCIDENT [None]
  - CHEST PAIN [None]
  - CHRONIC FATIGUE SYNDROME [None]
  - DEPRESSION [None]
  - DIPLOPIA [None]
  - DYSPNOEA [None]
  - ENDOCARDITIS [None]
  - GASTROOESOPHAGEAL REFLUX DISEASE [None]
  - GENERALISED ANXIETY DISORDER [None]
  - HAEMATOCHEZIA [None]
  - HETEROPHORIA [None]
  - HYPERTENSION [None]
  - HYPOACUSIS [None]
  - INJURY [None]
  - MIGRAINE WITH AURA [None]
  - NASAL CONGESTION [None]
  - NON-CARDIAC CHEST PAIN [None]
  - PAIN IN EXTREMITY [None]
  - PAIN IN JAW [None]
  - PANIC DISORDER [None]
  - PARAESTHESIA [None]
  - SLEEP APNOEA SYNDROME [None]
  - STRABISMUS [None]
  - THALAMUS HAEMORRHAGE [None]
  - TRANSIENT ISCHAEMIC ATTACK [None]
  - VENTRICULAR HYPERTROPHY [None]
